FAERS Safety Report 24664898 (Version 2)
Quarter: 2025Q1

REPORT INFORMATION
  Report Type: Spontaneous
  Country: AT (occurrence: AT)
  Receive Date: 20241126
  Receipt Date: 20250117
  Transmission Date: 20250409
  Serious: Yes (Life-Threatening, Hospitalization, Other)
  Sender: PFIZER
  Company Number: AT-PFIZER INC-PV202400151789

PATIENT
  Age: 44 Year
  Sex: Male

DRUGS (1)
  1. GEMTUZUMAB OZOGAMICIN [Suspect]
     Active Substance: GEMTUZUMAB OZOGAMICIN
     Dates: start: 20230920, end: 20231023

REACTIONS (8)
  - Respiratory failure [Unknown]
  - Pseudomonas infection [Unknown]
  - Bone marrow failure [Unknown]
  - Aspergillus infection [Unknown]
  - Pyrexia [Unknown]
  - General physical health deterioration [Unknown]
  - Dyspnoea [Unknown]
  - Tachycardia [Unknown]

NARRATIVE: CASE EVENT DATE: 20230926
